FAERS Safety Report 9240497 (Version 1)
Quarter: 2013Q2

REPORT INFORMATION
  Report Type: Spontaneous
  Country: US (occurrence: None)
  Receive Date: 20130417
  Receipt Date: 20130417
  Transmission Date: 20140414
  Serious: Yes (Other)
  Sender: FDA-Public Use
  Company Number: JPI-P-030940

PATIENT
  Age: 37 Year
  Sex: Male
  Weight: 122.47 kg

DRUGS (7)
  1. XYREM (500 MILLIGRAM/MILLILITERS, SOLUTION) (SODIUM OXYBATE) [Suspect]
     Indication: CATAPLEXY
     Dosage: 4.5 GM (2.25 GM, 2 IN 1 D), ORAL
     Route: 048
     Dates: start: 20130318
  2. CLOPIDOGREL BISULFATE [Concomitant]
  3. AMPHETAMINE, DEXTROAMPHETAMINE MIXED SALTS [Concomitant]
  4. PRAVASTATIN SODIUM [Concomitant]
  5. CARVEDILOL [Concomitant]
  6. NITROGLYCERINE (NITROSTAT) [Concomitant]
  7. ANTIHYPERTENSIVES [Concomitant]

REACTIONS (6)
  - Feeling abnormal [None]
  - Irritability [None]
  - Abnormal behaviour [None]
  - Inappropriate schedule of drug administration [None]
  - Substance use [None]
  - Middle insomnia [None]
